FAERS Safety Report 16184344 (Version 1)
Quarter: 2019Q2

REPORT INFORMATION
  Report Type: Spontaneous
  Country: US (occurrence: US)
  Receive Date: 20190410
  Receipt Date: 20190410
  Transmission Date: 20190711
  Serious: Yes (Death)
  Sender: FDA-Public Use
  Company Number: None

PATIENT
  Age: 70 Year
  Sex: Female
  Weight: 76.05 kg

DRUGS (6)
  1. ASPIRIN 81MG PO QDAY [Concomitant]
     Dates: start: 20170101
  2. TRULICITY 1.5MG SUBQ QWEEK [Concomitant]
     Dates: start: 20170414
  3. ALLOPURINOL 300MG PO QDAY [Concomitant]
     Dates: start: 20181204
  4. AMLODIPINE-OLMESARTAN 10/40MG PO QDAY [Concomitant]
     Dates: start: 20180124
  5. GABAPENTIN. [Suspect]
     Active Substance: GABAPENTIN
     Indication: OCCIPITAL NEURALGIA
     Route: 048
     Dates: start: 20181228, end: 20181231
  6. GLUCOPHAGE XR 2000MG PO QDAY [Concomitant]
     Dates: start: 20170626

REACTIONS (2)
  - Toxic epidermal necrolysis [None]
  - Stevens-Johnson syndrome [None]

NARRATIVE: CASE EVENT DATE: 20181231
